FAERS Safety Report 9164505 (Version 3)
Quarter: 2013Q2

REPORT INFORMATION
  Report Type: Report from Study
  Country: BR (occurrence: BR)
  Receive Date: 20130315
  Receipt Date: 20130417
  Transmission Date: 20140414
  Serious: Yes (Other)
  Sender: FDA-Public Use
  Company Number: PHHY2013BR025171

PATIENT
  Sex: Female
  Weight: 50 kg

DRUGS (4)
  1. ACLASTA [Suspect]
     Dosage: 5 MG/100ML, ONCE YEARLY
     Route: 042
     Dates: start: 2011
  2. DIOVAN [Concomitant]
     Indication: HYPERTENSION
     Dosage: 160 MG, QD
     Route: 048
  3. NUTRICAL D [Concomitant]
     Dosage: UNK UKN, UNK
  4. LANSOPRAZOLE [Concomitant]
     Dosage: UNK UKN, UNK

REACTIONS (2)
  - Fall [Recovered/Resolved]
  - Wrist fracture [Recovered/Resolved]
